FAERS Safety Report 17960632 (Version 1)
Quarter: 2020Q2

REPORT INFORMATION
  Report Type: Report from Study
  Country: DE (occurrence: GR)
  Receive Date: 20200630
  Receipt Date: 20200630
  Transmission Date: 20200714
  Serious: Yes (Disabling)
  Sender: FDA-Public Use
  Company Number: GR-ELI_LILLY_AND_COMPANY-GR202006011571

PATIENT
  Age: 69 Year
  Sex: Male
  Weight: 78 kg

DRUGS (2)
  1. CETUXIMAB. [Suspect]
     Active Substance: CETUXIMAB
     Indication: COLORECTAL CANCER METASTATIC
     Dosage: 400 MG/M2, ONCE IN TWO WEEKS
     Route: 042
     Dates: start: 20191220
  2. CETUXIMAB. [Suspect]
     Active Substance: CETUXIMAB
     Dosage: 500 MG/M2, ONCE IN TWO WEEKS
     Route: 042
     Dates: end: 20200127

REACTIONS (2)
  - Skin toxicity [Recovered/Resolved]
  - Off label use [Unknown]

NARRATIVE: CASE EVENT DATE: 20200224
